FAERS Safety Report 8169879-4 (Version None)
Quarter: 2012Q1

REPORT INFORMATION
  Report Type: 
  Country: None (occurrence: None)
  Receive Date: 20120222
  Receipt Date: 20120207
  Transmission Date: 20120608
  Serious: Yes (Hospitalization)
  Sender: FDA-Public Use
  Company Number: PNIS20120004

PATIENT
  Age: 36 Year
  Sex: Female

DRUGS (2)
  1. MITOXANTRONE [Suspect]
     Indication: NEUROMYELITIS OPTICA
     Dosage: , 7 MG/M2, INTRAVEOUS
     Route: 042
     Dates: start: 20090601, end: 20100201
  2. PREDNISOLONE [Suspect]
     Indication: NEUROMYELITIS OPTICA
     Dosage: 11 MG,

REACTIONS (5)
  - PNEUMOCYSTIS JIROVECI PNEUMONIA [None]
  - OSTEOPOROSIS [None]
  - COMPRESSION FRACTURE [None]
  - DIABETES MELLITUS [None]
  - MENINGITIS HERPES [None]
